FAERS Safety Report 8533769-5 (Version None)
Quarter: 2012Q3

REPORT INFORMATION
  Report Type: 
  Country: None (occurrence: None)
  Receive Date: 20120711
  Receipt Date: 20110920
  Transmission Date: 20120928
  Serious: No
  Sender: FDA-Public Use
  Company Number: A11-067

PATIENT
  Sex: Female

DRUGS (1)
  1. STANDARDIZED TIMOTHY GRASS POLLEN [Suspect]
     Indication: RHINITIS ALLERGIC
     Dosage: UNKNOWN

REACTIONS (1)
  - ANAPHYLACTIC REACTION [None]
